FAERS Safety Report 25659847 (Version 1)
Quarter: 2025Q3

REPORT INFORMATION
  Report Type: Spontaneous
  Country: US (occurrence: None)
  Receive Date: 20250807
  Receipt Date: 20250807
  Transmission Date: 20251021
  Serious: Yes (Other)
  Sender: FDA-CTU
  Company Number: None

PATIENT
  Age: 9 Year
  Sex: Male
  Weight: 28.2 kg

DRUGS (3)
  1. DUPIXENT [Suspect]
     Active Substance: DUPILUMAB
     Indication: Eosinophilic oesophagitis
     Route: 058
     Dates: start: 20250805
  2. LIDOCAINE\PRILOCAINE [Concomitant]
     Active Substance: LIDOCAINE\PRILOCAINE
  3. EPIPEN JR [Concomitant]
     Active Substance: EPINEPHRINE

REACTIONS (7)
  - Arthralgia [None]
  - Arthralgia [None]
  - Arthritis bacterial [None]
  - Autoimmune disorder [None]
  - Epiphysiolysis [None]
  - Perthes disease [None]
  - Synovitis [None]

NARRATIVE: CASE EVENT DATE: 20250805
